FAERS Safety Report 9637726 (Version 2)
Quarter: 2013Q4

REPORT INFORMATION
  Report Type: Spontaneous
  Country: JP (occurrence: JP)
  Receive Date: 20131022
  Receipt Date: 20131022
  Transmission Date: 20140711
  Serious: Yes (Other)
  Sender: FDA-Public Use
  Company Number: JP-PFIZER INC-2013292428

PATIENT
  Sex: Male

DRUGS (4)
  1. LYRICA [Suspect]
     Indication: POST HERPETIC NEURALGIA
     Dosage: 75 MG, 2X/DAY
     Route: 048
  2. LYRICA [Suspect]
     Dosage: 150 MG, 2X/DAY
     Route: 048
  3. CELECOX [Suspect]
     Dosage: 100 MG, 2X/DAY (IN THE MORNING AND IN THE EVENING)
     Route: 048
  4. TRAMAL [Suspect]

REACTIONS (2)
  - Dizziness [Unknown]
  - Asthenia [Unknown]
